FAERS Safety Report 7263380-8 (Version None)
Quarter: 2011Q1

REPORT INFORMATION
  Report Type: 
  Country: None (occurrence: None)
  Receive Date: 20110130
  Receipt Date: 20101025
  Transmission Date: 20110831
  Serious: No
  Sender: FDA-Public Use
  Company Number: US-ABBOTT-10P-163-0681710-00

PATIENT
  Sex: Female
  Weight: 106.69 kg

DRUGS (1)
  1. HUMIRA [Suspect]
     Indication: PSORIASIS
     Dates: start: 20100201, end: 20100801

REACTIONS (5)
  - PSORIATIC ARTHROPATHY [None]
  - PSORIASIS [None]
  - ARTHRITIS [None]
  - ARTHRALGIA [None]
  - ABASIA [None]
